FAERS Safety Report 7205555-X (Version None)
Quarter: 2010Q4

REPORT INFORMATION
  Report Type: 
  Country: None (occurrence: None)
  Receive Date: 20101231
  Receipt Date: 20101221
  Transmission Date: 20110411
  Serious: Yes (Hospitalization, Other)
  Sender: FDA-Public Use
  Company Number: PHHY2010CH86841

PATIENT
  Sex: Male

DRUGS (16)
  1. SANDIMMUNE [Suspect]
     Indication: HEART TRANSPLANT
     Dosage: 300 MG/D
     Dates: start: 20100124
  2. TOREM [Suspect]
     Dosage: 15MG/D
     Dates: start: 20101118, end: 20101118
  3. CELLCEPT [Concomitant]
     Dosage: 4G/D
  4. PREDNISONE [Concomitant]
     Dosage: 15MG/D
  5. PREDNISONE [Concomitant]
     Dosage: 20 MG/D
  6. ASPIRIN [Concomitant]
     Dosage: 100MG/D
  7. BELOC ZOK [Concomitant]
     Dosage: 200 MG/D
  8. CARDURA CR [Concomitant]
     Dosage: 16 MG/D
  9. PRAVASTATIN [Concomitant]
     Dosage: 40 MG/D
  10. CALCIMAGON-D3 [Concomitant]
     Dosage: 1000 MG/D
  11. POTASSIUM CHLORIDE [Concomitant]
     Dosage: 32 MMOL/D
  12. VALCYTE [Concomitant]
     Dosage: 450 MG/D
  13. ZYLORIC [Concomitant]
     Dosage: 150 MG/D
  14. MAGNESIUM [Concomitant]
     Dosage: 120 MG/D
  15. OTRIVIN [Concomitant]
     Dosage: 0.28 MG/D
     Dates: start: 20101115, end: 20101122
  16. DAFALGAN [Concomitant]
     Dosage: 3 G/DAY

REACTIONS (6)
  - ARTHRALGIA [None]
  - GOUTY ARTHRITIS [None]
  - OEDEMA PERIPHERAL [None]
  - PAIN IN EXTREMITY [None]
  - PARAESTHESIA [None]
  - RENAL FAILURE CHRONIC [None]
